FAERS Safety Report 4342302-3 (Version None)
Quarter: 2004Q2

REPORT INFORMATION
  Report Type: 
  Country: None (occurrence: None)
  Receive Date: 20040420
  Receipt Date: 20040420
  Transmission Date: 20050107
  Serious: Yes (Hospitalization)
  Sender: FDA-Public Use
  Company Number: None

PATIENT
  Age: 62 Year
  Sex: Male

DRUGS (11)
  1. CRESTOR [Suspect]
     Indication: HYPERCHOLESTEROLAEMIA
     Dosage: 40MG DAILY ORAL
     Route: 048
     Dates: start: 20040308, end: 20040312
  2. AMIODARONE HCL [Concomitant]
  3. ASPIRIN [Concomitant]
  4. ATENOLOL [Concomitant]
  5. DIGOXIN [Concomitant]
  6. ENOXAPARIN SODIUM [Concomitant]
  7. DILTIAZEM [Concomitant]
  8. ATIVAN [Concomitant]
  9. MORPHINE [Concomitant]
  10. PERCOCET [Concomitant]
  11. COUMADIN [Concomitant]

REACTIONS (6)
  - ASTHENIA [None]
  - ATRIAL FIBRILLATION [None]
  - HYPOAESTHESIA [None]
  - PAIN [None]
  - PAIN IN EXTREMITY [None]
  - RHABDOMYOLYSIS [None]
